FAERS Safety Report 7653662-X (Version None)
Quarter: 2011Q3

REPORT INFORMATION
  Report Type: 
  Country: None (occurrence: None)
  Receive Date: 20110803
  Receipt Date: 20110729
  Transmission Date: 20111222
  Serious: Yes (Other)
  Sender: FDA-Public Use
  Company Number: US-PFIZER INC-2011159056

PATIENT
  Age: 60 Year
  Sex: Female
  Weight: 93.878 kg

DRUGS (5)
  1. MULTI-VITAMINS [Concomitant]
     Indication: SUPPLEMENTATION THERAPY
     Dosage: ONE TABLET ONCE DAILY
  2. LISINOPRIL AND HYDROCHLOROTHIAZIDE [Concomitant]
     Indication: BLOOD PRESSURE MANAGEMENT
     Dosage: LISINOPRIL 10MG/HYDROCHLOROTHIAZIDE 12.5MG, DAILY
  3. ASPIRIN [Concomitant]
     Dosage: 162 MG, DAILY
  4. LIPITOR [Suspect]
     Indication: BLOOD CHOLESTEROL INCREASED
     Dosage: 20 MG, DAILY
     Route: 048
     Dates: start: 20110427
  5. CALCIUM [Concomitant]
     Indication: SUPPLEMENTATION THERAPY
     Dosage: ONE TABLET ONCE DAILY

REACTIONS (5)
  - DISTURBANCE IN ATTENTION [None]
  - READING DISORDER [None]
  - FEELING ABNORMAL [None]
  - COGNITIVE DISORDER [None]
  - MEMORY IMPAIRMENT [None]
